FAERS Safety Report 10176066 (Version 1)
Quarter: 2014Q2

REPORT INFORMATION
  Report Type: Spontaneous
  Country: US (occurrence: None)
  Receive Date: 20140514
  Receipt Date: 20140514
  Transmission Date: 20141212
  Serious: Yes (Death, Hospitalization)
  Sender: FDA-Public Use
  Company Number: 2014US003262

PATIENT
  Age: 65 Year
  Sex: Male

DRUGS (1)
  1. ICLUSIG (PONATINIB)TABLET, 15 MG [Suspect]
     Indication: ACUTE LYMPHOCYTIC LEUKAEMIA
     Route: 048
     Dates: start: 20140331, end: 20140408

REACTIONS (1)
  - Death [None]
